FAERS Safety Report 7029195-0 (Version None)
Quarter: 2010Q3

REPORT INFORMATION
  Report Type: 
  Country: None (occurrence: None)
  Receive Date: 20100930
  Receipt Date: 20100918
  Transmission Date: 20110219
  Serious: Yes (Hospitalization, Other)
  Sender: FDA-Public Use
  Company Number: 2010AP002038

PATIENT
  Age: 42 Year
  Sex: Female

DRUGS (3)
  1. MYCOPHENOLATE MOFETIL [Suspect]
     Indication: AUTOIMMUNE HEPATITIS
     Dosage: 1500 MG; BID
  2. PREDNISONE [Concomitant]
  3. AZATHIOPRINE [Concomitant]

REACTIONS (7)
  - HAEMOGLOBIN DECREASED [None]
  - IMMUNODEFICIENCY [None]
  - LYMPHOPROLIFERATIVE DISORDER [None]
  - NIGHT SWEATS [None]
  - PSEUDOLYMPHOMA [None]
  - PYREXIA [None]
  - WEIGHT DECREASED [None]
